FAERS Safety Report 7784930-9 (Version None)
Quarter: 2011Q3

REPORT INFORMATION
  Report Type: 
  Country: None (occurrence: None)
  Receive Date: 20110928
  Receipt Date: 20110921
  Transmission Date: 20111222
  Serious: Yes (Other)
  Sender: FDA-Public Use
  Company Number: US-BAYER-2011-088024

PATIENT
  Sex: Female

DRUGS (1)
  1. YAZ [Suspect]
     Dosage: 1 DF, QD
     Route: 048
     Dates: start: 20110501

REACTIONS (4)
  - MENSTRUATION DELAYED [None]
  - VAGINAL DISCHARGE [None]
  - GENITAL DISCHARGE [None]
  - VAGINAL HAEMORRHAGE [None]
